FAERS Safety Report 22331029 (Version 3)
Quarter: 2023Q2

REPORT INFORMATION
  Report Type: Spontaneous
  Country: US (occurrence: None)
  Receive Date: 20230517
  Receipt Date: 20230630
  Transmission Date: 20230722
  Serious: Yes (Hospitalization)
  Sender: FDA-Public Use
  Company Number: US-ROCHE-3350260

PATIENT
  Sex: Male

DRUGS (1)
  1. OCREVUS [Suspect]
     Active Substance: OCRELIZUMAB
     Indication: Tumefactive multiple sclerosis
     Route: 065
     Dates: start: 202212

REACTIONS (3)
  - Muscular weakness [Unknown]
  - Lumbar puncture [Unknown]
  - Quadriplegia [Unknown]
